FAERS Safety Report 5560163-1 (Version None)
Quarter: 2007Q4

REPORT INFORMATION
  Report Type: 
  Country: None (occurrence: None)
  Receive Date: 20071214
  Receipt Date: 20071024
  Transmission Date: 20080405
  Serious: No
  Sender: FDA-Public Use
  Company Number: US-ABBOTT-07P-163-0422547-00

PATIENT
  Sex: Female
  Weight: 81.72 kg

DRUGS (6)
  1. HUMIRA [Suspect]
     Indication: CROHN'S DISEASE
     Route: 058
     Dates: start: 20070927, end: 20070927
  2. HUMIRA [Suspect]
     Route: 058
     Dates: start: 20071011, end: 20071011
  3. HUMIRA [Suspect]
     Route: 058
     Dates: start: 20071024
  4. ESOMEPRAZOLE MAGNESIUM [Concomitant]
     Indication: GASTROOESOPHAGEAL REFLUX DISEASE
     Route: 048
     Dates: start: 20040101
  5. DULOXETINE HYDROCHLORIDE [Concomitant]
     Indication: ANXIETY
     Route: 048
     Dates: start: 20050101
  6. DAYTRANA PATCH [Concomitant]
     Indication: ATTENTION DEFICIT/HYPERACTIVITY DISORDER
     Route: 061
     Dates: start: 20060101

REACTIONS (1)
  - INJECTION SITE PAIN [None]
